FAERS Safety Report 11381516 (Version 1)
Quarter: 2015Q3

REPORT INFORMATION
  Report Type: Other
  Country: GB (occurrence: GB)
  Receive Date: 20150814
  Receipt Date: 20150814
  Transmission Date: 20151125
  Serious: Yes (Hospitalization)
  Sender: FDA-Public Use
  Company Number: GB-MYLANLABS-2015M1026201

PATIENT

DRUGS (7)
  1. LANSOPRAZOLE. [Suspect]
     Active Substance: LANSOPRAZOLE
     Dosage: 30 MG, QD (INCREASED TO 30MG TWICE A DAY IN JUNE 2015)
     Route: 048
     Dates: start: 20140201, end: 201506
  2. METFORMIN [Concomitant]
     Active Substance: METFORMIN HYDROCHLORIDE
     Dosage: 1 G, BID
  3. LANSOPRAZOLE. [Suspect]
     Active Substance: LANSOPRAZOLE
     Dosage: 30 MG, BID
     Dates: start: 201506
  4. ADCAL-D3 [Concomitant]
     Active Substance: CALCIUM CARBONATE\CHOLECALCIFEROL
     Dosage: 1 DF, BID
  5. INSUMAN [Concomitant]
     Active Substance: INSULIN HUMAN
     Dosage: 30 IU, UNK (14 UNITS AM, 16 UNITS PM)
  6. NATEGLINIDE. [Concomitant]
     Active Substance: NATEGLINIDE
     Dosage: 60 MG, TID
  7. FERROUS GLUCONATE [Concomitant]
     Active Substance: FERROUS GLUCONATE
     Dosage: 300 MG, BID

REACTIONS (1)
  - Hyponatraemia [Unknown]
